FAERS Safety Report 17965853 (Version 2)
Quarter: 2020Q3

REPORT INFORMATION
  Report Type: Report from Study
  Country: US (occurrence: US)
  Receive Date: 20200701
  Receipt Date: 20200807
  Transmission Date: 20201103
  Serious: Yes (Hospitalization)
  Sender: FDA-Public Use
  Company Number: US-ROCHE-2438708

PATIENT
  Age: 71 Year
  Sex: Female
  Weight: 98.4 kg

DRUGS (13)
  1. ATEZOLIZUMAB. [Suspect]
     Active Substance: ATEZOLIZUMAB
     Indication: COLON CANCER STAGE III
     Dosage: ON DAY 1
     Route: 041
     Dates: start: 20190723
  2. OXALIPLATIN. [Concomitant]
     Active Substance: OXALIPLATIN
  3. OXALIPLATIN. [Suspect]
     Active Substance: OXALIPLATIN
     Indication: COLON CANCER STAGE III
     Dosage: OVER 2 HOURS ON DAY 1
     Route: 042
     Dates: start: 20190723
  4. LEUCOVORIN. [Concomitant]
     Active Substance: LEUCOVORIN
  5. FLUOROURACIL. [Concomitant]
     Active Substance: FLUOROURACIL
  6. ATROPINE. [Concomitant]
     Active Substance: ATROPINE
  7. HYDROXYZINE [Concomitant]
     Active Substance: HYDROXYZINE HYDROCHLORIDE
  8. OMEPRAZOLE. [Concomitant]
     Active Substance: OMEPRAZOLE
  9. FLUOROURACIL. [Suspect]
     Active Substance: FLUOROURACIL
     Indication: COLON CANCER STAGE III
     Dosage: ON DAY 1 FOLLOWED BY 2400MG/M2 IV OVER 46 HOURS DAYS 1?3
     Route: 040
     Dates: start: 20190723
  10. LEUCOVORIN CALCIUM. [Suspect]
     Active Substance: LEUCOVORIN CALCIUM
     Indication: COLON CANCER STAGE III
     Dosage: OVER 2 HOURS ON DAY 1
     Route: 042
     Dates: start: 20190723
  11. AMIODARONE [Suspect]
     Active Substance: AMIODARONE
     Indication: PRODUCT USED FOR UNKNOWN INDICATION
     Route: 065
  12. DILAUDID [Concomitant]
     Active Substance: HYDROMORPHONE HYDROCHLORIDE
  13. ELIQUIS [Concomitant]
     Active Substance: APIXABAN

REACTIONS (2)
  - Cerebrovascular accident [Not Recovered/Not Resolved]
  - Atrial fibrillation [Recovered/Resolved]

NARRATIVE: CASE EVENT DATE: 20190923
